FAERS Safety Report 9214932 (Version 1)
Quarter: 2013Q2

REPORT INFORMATION
  Report Type: Report from Study
  Country: US (occurrence: US)
  Receive Date: 20130405
  Receipt Date: 20130405
  Transmission Date: 20140414
  Serious: Yes (Other)
  Sender: FDA-Public Use
  Company Number: US-AMGEN-US364355

PATIENT
  Age: 73 Year
  Sex: Male
  Weight: 113.38 kg

DRUGS (11)
  1. DENOSUMAB [Suspect]
     Indication: PROSTATE CANCER
     Dosage: UNK UNK, Q4WK
     Route: 058
     Dates: start: 20071017, end: 20090824
  2. TAMSULOSIN HCL [Concomitant]
  3. LISINOPRIL [Concomitant]
  4. NIASPAN [Concomitant]
  5. ASPIRIN [Concomitant]
     Dosage: 81 MG, BID
  6. CALCIUM/ERGOCALCIFEROL [Concomitant]
  7. TRIPTORELIN [Concomitant]
     Dosage: UNK UNK, Q3MO
  8. CYCLOBENZAPRINE HYDROCHLORIDE [Concomitant]
     Dosage: UNK UNK, PRN
  9. IBUPROFEN [Concomitant]
     Dosage: UNK UNK, PRN
  10. WARFARIN SODIUM [Concomitant]
  11. MULTIVITAMINS [Concomitant]

REACTIONS (1)
  - Osteonecrosis of jaw [Not Recovered/Not Resolved]
